FAERS Safety Report 8790539 (Version 2)
Quarter: 2013Q2

REPORT INFORMATION
  Report Type: Spontaneous
  Country: CA (occurrence: None)
  Receive Date: 20120905
  Receipt Date: 20130501
  Transmission Date: 20140414
  Serious: Yes (Other)
  Sender: FDA-Public Use
  Company Number: 2012-003161

PATIENT
  Age: 78 Year
  Sex: Female
  Weight: 72.6 kg

DRUGS (9)
  1. ACTONEL [Suspect]
     Indication: OSTEOPOROSIS
     Route: 048
     Dates: start: 1998, end: 201201
  2. PAXIL (PAROXETINE HYDROCHLORIDE) [Concomitant]
  3. DIOVAN HCT (HYDROCHLOROTHIAZIDE, VALSARTAN) [Concomitant]
  4. LIPITOR (ATORVASTATIN CALCIUM) [Concomitant]
  5. PARIET (RABEPRAZOLE SODIUM) [Concomitant]
  6. VITAMIN D   /0318501/ (COLECALCIFEROL) [Concomitant]
  7. CALCIUM (CALCIUM) [Concomitant]
  8. MEVACOR (LOVASTATIN) [Concomitant]
  9. LIPIDIL EZ (FENOFIBRATE) [Concomitant]

REACTIONS (2)
  - Atypical femur fracture [None]
  - Pain in extremity [None]
